FAERS Safety Report 6612099-2 (Version None)
Quarter: 2010Q1

REPORT INFORMATION
  Report Type: 
  Country: None (occurrence: None)
  Receive Date: 20100219
  Receipt Date: 20100128
  Transmission Date: 20100710
  Serious: No
  Sender: FDA-Public Use
  Company Number: 2010-00090

PATIENT
  Sex: Female

DRUGS (1)
  1. ZICAM NASAL PRODUCTS [Suspect]
     Dates: start: 20031201

REACTIONS (2)
  - AGEUSIA [None]
  - ANOSMIA [None]
